FAERS Safety Report 22324694 (Version 1)
Quarter: 2023Q2

REPORT INFORMATION
  Report Type: Spontaneous
  Country: US (occurrence: US)
  Receive Date: 20230516
  Receipt Date: 20230516
  Transmission Date: 20230722
  Serious: Yes (Hospitalization)
  Sender: FDA-Public Use
  Company Number: US-PFIZER INC-US-GBT-021655

PATIENT
  Age: 26 Year
  Sex: Female

DRUGS (3)
  1. OXBRYTA [Suspect]
     Active Substance: VOXELOTOR
     Dosage: 500 MG
     Route: 048
  2. OXBRYTA [Suspect]
     Active Substance: VOXELOTOR
     Dosage: 1000 MG
     Route: 048
  3. OXBRYTA [Suspect]
     Active Substance: VOXELOTOR
     Dosage: ALT BETWEEN 1 AND 2 TABLETS

REACTIONS (3)
  - Pain [Unknown]
  - Rash [Recovered/Resolved]
  - Off label use [Unknown]

NARRATIVE: CASE EVENT DATE: 20230405
